FAERS Safety Report 8805224 (Version 1)
Quarter: 2012Q4

REPORT INFORMATION
  Report Type: 
  Country: US (occurrence: US)
  Receive Date: 20120924
  Receipt Date: 20120924
  Transmission Date: 20130627
  Serious: No
  Sender: FDA-Public Use
  Company Number: US-009507513-1209USA009450

PATIENT
  Age: 42 Year
  Sex: Female

DRUGS (3)
  1. SINGULAIR [Suspect]
     Indication: NASAL POLYPS
     Dosage: 10 mg, qd
     Route: 048
     Dates: start: 2010
  2. NASONEX [Concomitant]
     Dosage: UNK
     Route: 045
  3. PULMICORT [Concomitant]

REACTIONS (3)
  - Palpitations [Not Recovered/Not Resolved]
  - Tremor [Not Recovered/Not Resolved]
  - Maternal exposure during pregnancy [Unknown]
